FAERS Safety Report 9184244 (Version 1)
Quarter: 2013Q1

REPORT INFORMATION
  Report Type: Spontaneous
  Country: US (occurrence: US)
  Receive Date: 20130322
  Receipt Date: 20130322
  Transmission Date: 20140127
  Serious: Yes (Other)
  Sender: FDA-Public Use
  Company Number: US-BRISTOL-MYERS SQUIBB COMPANY-16473084

PATIENT
  Age: 56 Year
  Sex: Male

DRUGS (6)
  1. ERBITUX [Suspect]
     Indication: COLON CANCER
  2. ERBITUX [Suspect]
     Indication: BLADDER CANCER
  3. HYDROCHLOROTHIAZIDE [Concomitant]
  4. DILAUDID [Concomitant]
  5. VALIUM [Concomitant]
  6. NEURONTIN [Concomitant]

REACTIONS (1)
  - Dermatitis acneiform [Unknown]
